FAERS Safety Report 19189592 (Version 1)
Quarter: 2021Q2

REPORT INFORMATION
  Report Type: Spontaneous
  Country: US (occurrence: US)
  Receive Date: 20210428
  Receipt Date: 20210428
  Transmission Date: 20210717
  Serious: No
  Sender: FDA-Public Use
  Company Number: US-APOTEX-2021AP006040

PATIENT
  Sex: Female

DRUGS (2)
  1. CYCLOSPORINE. [Suspect]
     Active Substance: CYCLOSPORINE
     Indication: PRODUCT USED FOR UNKNOWN INDICATION
     Dosage: 1 DOSAGE FORM, QD
     Route: 065
  2. CYCLOSPORINE SOFT GELATIN CAPSULE [Suspect]
     Active Substance: CYCLOSPORINE
     Indication: PRODUCT USED FOR UNKNOWN INDICATION
     Dosage: 1 DOSAGE FORM, QD
     Route: 065

REACTIONS (4)
  - Dyspnoea [Not Recovered/Not Resolved]
  - Yellow skin [Not Recovered/Not Resolved]
  - Back pain [Not Recovered/Not Resolved]
  - Gingival bleeding [Not Recovered/Not Resolved]

NARRATIVE: CASE EVENT DATE: 202011
